FAERS Safety Report 23902110 (Version 1)
Quarter: 2024Q2

REPORT INFORMATION
  Report Type: Spontaneous
  Country: US (occurrence: None)
  Receive Date: 20240526
  Receipt Date: 20240526
  Transmission Date: 20240717
  Serious: No
  Sender: FDA-Public Use
  Company Number: US-ROCHE-3479335

PATIENT
  Sex: Male

DRUGS (7)
  1. ACTEMRA [Suspect]
     Active Substance: TOCILIZUMAB
     Indication: Rheumatoid arthritis
     Dosage: STRENGTH: 162 MG 0.9 ML
     Route: 058
     Dates: start: 20231106
  2. ACTEMRA [Suspect]
     Active Substance: TOCILIZUMAB
  3. DICLOFENAC [Concomitant]
     Active Substance: DICLOFENAC
     Route: 048
  4. FERROUS SULFATE [Concomitant]
     Active Substance: FERROUS SULFATE
     Route: 048
  5. LEFLUNOMIDE [Concomitant]
     Active Substance: LEFLUNOMIDE
     Route: 048
  6. MINOCYCLINE [Concomitant]
     Active Substance: MINOCYCLINE HYDROCHLORIDE
  7. PREDNISONE [Concomitant]
     Active Substance: PREDNISONE
     Route: 048

REACTIONS (2)
  - Headache [Not Recovered/Not Resolved]
  - Pain [Not Recovered/Not Resolved]
